FAERS Safety Report 16161141 (Version 3)
Quarter: 2019Q2

REPORT INFORMATION
  Report Type: Spontaneous
  Country: BR (occurrence: BR)
  Receive Date: 20190405
  Receipt Date: 20190411
  Transmission Date: 20190711
  Serious: No
  Sender: FDA-Public Use
  Company Number: BR-ABBVIE-19K-020-2730989-00

PATIENT
  Sex: Female
  Weight: 72 kg

DRUGS (10)
  1. DPREV [Concomitant]
     Indication: PRODUCT USED FOR UNKNOWN INDICATION
     Route: 048
  2. PREBICTAL [Concomitant]
     Active Substance: PREGABALIN
     Indication: PAIN
     Route: 048
     Dates: start: 2014
  3. PURAN [Concomitant]
     Active Substance: LEVOTHYROXINE SODIUM
     Indication: THYROID DISORDER
     Route: 048
     Dates: start: 2014
  4. HUMIRA [Suspect]
     Active Substance: ADALIMUMAB
     Indication: ANKYLOSING SPONDYLITIS
     Route: 058
  5. CYMBI [Concomitant]
     Indication: PAIN
     Dosage: AT NIGHT
     Route: 048
     Dates: start: 2017
  6. LIPIDIL [Concomitant]
     Active Substance: FENOFIBRATE
     Indication: BLOOD TRIGLYCERIDES INCREASED
     Dosage: AT NIGHT
     Route: 048
     Dates: start: 201804
  7. HUMIRA [Suspect]
     Active Substance: ADALIMUMAB
     Indication: ANKYLOSING SPONDYLITIS
     Route: 058
     Dates: start: 201803
  8. ATORVASTATIN CALCIUM. [Concomitant]
     Active Substance: ATORVASTATIN CALCIUM
     Indication: BLOOD CHOLESTEROL
     Route: 048
     Dates: start: 2017
  9. CYMBI [Concomitant]
     Indication: ANXIETY
     Dosage: 2 CAPSULES IN THE MORNING AND AT NIGHT
     Route: 048
     Dates: start: 2014
  10. PREBICTAL [Concomitant]
     Active Substance: PREGABALIN
     Route: 048

REACTIONS (6)
  - Fear of injection [Unknown]
  - Multi-organ disorder [Unknown]
  - Wrong technique in product usage process [Unknown]
  - Product storage error [Unknown]
  - Hypotension [Unknown]
  - Injection site pain [Not Recovered/Not Resolved]

NARRATIVE: CASE EVENT DATE: 201803
